FAERS Safety Report 19708017 (Version 1)
Quarter: 2021Q3

REPORT INFORMATION
  Report Type: Spontaneous
  Country: US (occurrence: US)
  Receive Date: 20210816
  Receipt Date: 20210816
  Transmission Date: 20211014
  Serious: Yes (Hospitalization, Other)
  Sender: FDA-Public Use
  Company Number: US-AMGEN-USASP2021125548

PATIENT
  Age: 37 Year
  Sex: Female

DRUGS (2)
  1. VECTIBIX [Suspect]
     Active Substance: PANITUMUMAB
     Indication: COLORECTAL CANCER METASTATIC
     Dosage: 4 TREATMENTS OR CYCLES
     Route: 065
  2. VECTIBIX [Suspect]
     Active Substance: PANITUMUMAB
     Dosage: UNK
     Route: 065
     Dates: start: 2021

REACTIONS (7)
  - Rash [Unknown]
  - Blister [Unknown]
  - Pelvic abscess [Recovered/Resolved]
  - Nausea [Unknown]
  - Pelvic pain [Unknown]
  - Abdominal discomfort [Unknown]
  - Dry skin [Unknown]

NARRATIVE: CASE EVENT DATE: 20210812
